FAERS Safety Report 6041831-4 (Version None)
Quarter: 2009Q1

REPORT INFORMATION
  Report Type: 
  Country: None (occurrence: None)
  Receive Date: 20090116
  Receipt Date: 20090105
  Transmission Date: 20090719
  Serious: Yes (Other)
  Sender: FDA-Public Use
  Company Number: CA-PFIZER INC-2008091169

PATIENT

DRUGS (2)
  1. SUTENT [Suspect]
     Indication: RENAL CANCER METASTATIC
     Dosage: 50 MG, 1X/DAY
     Route: 048
  2. PIOGLITAZONE [Interacting]
     Indication: DIABETES MELLITUS
     Route: 048

REACTIONS (4)
  - ANOREXIA [None]
  - DRUG INTERACTION [None]
  - LIVER DISORDER [None]
  - PYREXIA [None]
